FAERS Safety Report 5848967-9 (Version None)
Quarter: 2008Q3

REPORT INFORMATION
  Report Type: 
  Country: None (occurrence: None)
  Receive Date: 20080819
  Receipt Date: 20080814
  Transmission Date: 20090109
  Serious: Yes (Death, Hospitalization)
  Sender: FDA-Public Use
  Company Number: PHHO2008IL08603

PATIENT
  Sex: Male
  Weight: 81 kg

DRUGS (2)
  1. TASIGNA [Suspect]
     Indication: GASTROINTESTINAL STROMAL TUMOUR
     Dosage: 800 MG, QD
     Route: 048
     Dates: start: 20080626, end: 20080701
  2. OPTALGIN [Concomitant]
     Indication: PAIN

REACTIONS (14)
  - ABDOMINAL PAIN [None]
  - FATIGUE [None]
  - GENERALISED OEDEMA [None]
  - HEPATIC FAILURE [None]
  - HEPATIC FUNCTION ABNORMAL [None]
  - HYPOALBUMINAEMIA [None]
  - JAUNDICE [None]
  - NAUSEA [None]
  - OEDEMA PERIPHERAL [None]
  - PAIN [None]
  - RENAL FAILURE ACUTE [None]
  - RENAL IMPAIRMENT [None]
  - STUPOR [None]
  - VOMITING [None]
